FAERS Safety Report 7764699-4 (Version None)
Quarter: 2011Q3

REPORT INFORMATION
  Report Type: 
  Country: None (occurrence: None)
  Receive Date: 20110921
  Receipt Date: 20110913
  Transmission Date: 20111222
  Serious: Yes (Hospitalization, Other)
  Sender: FDA-Public Use
  Company Number: US-AMGEN-USASP2011047022

PATIENT
  Sex: Female

DRUGS (1)
  1. ENBREL [Suspect]
     Indication: RHEUMATOID ARTHRITIS
     Dosage: 25 MG, 2 TIMES/WK
     Dates: start: 19980101

REACTIONS (7)
  - INTERVERTEBRAL DISC DISPLACEMENT [None]
  - INTERNAL FIXATION OF SPINE [None]
  - REVISION OF INTERNAL FIXATION [None]
  - INTRACRANIAL HYPOTENSION [None]
  - PARAESTHESIA [None]
  - HEADACHE [None]
  - TORTICOLLIS [None]
